FAERS Safety Report 7429020-X (Version None)
Quarter: 2011Q2

REPORT INFORMATION
  Report Type: 
  Country: None (occurrence: None)
  Receive Date: 20110421
  Receipt Date: 20110411
  Transmission Date: 20111010
  Serious: Yes (Other)
  Sender: FDA-Public Use
  Company Number: BR-SANOFI-AVENTIS-2011SA022422

PATIENT
  Sex: Female
  Weight: 72 kg

DRUGS (8)
  1. LANTUS [Suspect]
     Indication: TYPE 1 DIABETES MELLITUS
     Route: 058
  2. VYTORIN [Concomitant]
     Route: 048
  3. EPOETIN ALFA [Concomitant]
     Route: 058
  4. RENAGEL [Concomitant]
     Route: 048
  5. AUTOPEN 24 [Suspect]
  6. CILOSTAZOL [Concomitant]
     Route: 048
  7. PROPAFENONE HYDROCHLORIDE [Concomitant]
     Route: 048
  8. IRON POLYMALTOSE [Concomitant]

REACTIONS (5)
  - FEELING ABNORMAL [None]
  - HYPERGLYCAEMIA [None]
  - RENAL DISORDER [None]
  - HYPOGLYCAEMIA [None]
  - COLD SWEAT [None]
